FAERS Safety Report 9180788 (Version 1)
Quarter: 2013Q1

REPORT INFORMATION
  Report Type: Report from Study
  Country: CA (occurrence: CA)
  Receive Date: 20130322
  Receipt Date: 20130322
  Transmission Date: 20140127
  Serious: Yes (Hospitalization)
  Sender: FDA-Public Use
  Company Number: CA-JNJFOC-20130306786

PATIENT
  Age: 56 Year
  Sex: Male
  Weight: 55.7 kg

DRUGS (3)
  1. REMICADE [Suspect]
     Indication: CROHN^S DISEASE
     Dosage: WEEK TWO INFLIXIMAB DOSE
     Route: 042
     Dates: start: 20130208
  2. REMICADE [Suspect]
     Indication: CROHN^S DISEASE
     Dosage: LOADING DOSE
     Route: 042
     Dates: start: 20130130
  3. PREDNISONE [Concomitant]
     Route: 065

REACTIONS (2)
  - Convulsion [Recovering/Resolving]
  - Blood glucose increased [Recovering/Resolving]
